FAERS Safety Report 21863477 (Version 3)
Quarter: 2023Q1

REPORT INFORMATION
  Report Type: Report from Study
  Country: US (occurrence: US)
  Receive Date: 20230115
  Receipt Date: 20230307
  Transmission Date: 20230418
  Serious: Yes (Other)
  Sender: FDA-Public Use
  Company Number: US-ABBVIE-4231873

PATIENT
  Age: 56 Year
  Sex: Male

DRUGS (1)
  1. RINVOQ [Suspect]
     Active Substance: UPADACITINIB
     Indication: Rheumatoid arthritis
     Route: 048

REACTIONS (8)
  - Loss of consciousness [Recovering/Resolving]
  - White blood cell count abnormal [Unknown]
  - Pain [Unknown]
  - Restless legs syndrome [Not Recovered/Not Resolved]
  - Rheumatoid arthritis [Unknown]
  - Infection [Recovering/Resolving]
  - Arthralgia [Recovering/Resolving]
  - Lung opacity [Unknown]

NARRATIVE: CASE EVENT DATE: 20220609
